FAERS Safety Report 4901501-X (Version None)
Quarter: 2006Q1

REPORT INFORMATION
  Report Type: 
  Country: None (occurrence: None)
  Receive Date: 20060202
  Receipt Date: 20060202
  Transmission Date: 20060701
  Serious: Yes (Life-Threatening)
  Sender: FDA-Public Use
  Company Number: None

PATIENT
  Age: 91 Year
  Sex: Female
  Weight: 43.0917 kg

DRUGS (2)
  1. FENTANYL [Suspect]
     Indication: PAIN
     Dosage: 50 MCG   EVERY 3 DAYS
     Dates: start: 20060127, end: 20060130
  2. FENTANYL [Suspect]
     Indication: PAIN
     Dosage: 50 MCG   EVERY 3 DAYS
     Dates: start: 20060130, end: 20060131

REACTIONS (4)
  - HYPERVENTILATION [None]
  - PAIN [None]
  - PHARMACEUTICAL PRODUCT COMPLAINT [None]
  - TREMOR [None]
